FAERS Safety Report 7022141-5 (Version None)
Quarter: 2010Q3

REPORT INFORMATION
  Report Type: 
  Country: None (occurrence: None)
  Receive Date: 20100930
  Receipt Date: 20100916
  Transmission Date: 20110219
  Serious: Yes (Hospitalization, Other)
  Sender: FDA-Public Use
  Company Number: PHHY2010HU57190

PATIENT
  Age: 59 Year
  Sex: Female

DRUGS (7)
  1. CARBAMAZEPINE [Suspect]
     Indication: BIPOLAR DISORDER
     Dosage: UNK
     Dates: start: 19770101
  2. VALPROATE BISMUTH [Suspect]
     Dosage: UNK
     Dates: start: 19970101
  3. LITHIUM [Concomitant]
  4. ARIPIPRAZOLE [Concomitant]
     Dosage: 30MG, PER DAY
  5. ARIPIPRAZOLE [Concomitant]
     Dosage: 15MG, PER DAY
  6. ARIPIPRAZOLE [Concomitant]
     Dosage: 7.5MG, PER DAY
  7. VENLAFAXINE [Concomitant]
     Dosage: 75MG,

REACTIONS (18)
  - ABNORMAL BEHAVIOUR [None]
  - AGITATION [None]
  - BIPOLAR DISORDER [None]
  - DELUSION [None]
  - DEPRESSION [None]
  - DRUG INEFFECTIVE [None]
  - DYSPHORIA [None]
  - DYSPNOEA [None]
  - DYSTHYMIC DISORDER [None]
  - EXTRAPYRAMIDAL DISORDER [None]
  - GAIT DISTURBANCE [None]
  - HYPOMANIA [None]
  - HYPOTHYROIDISM [None]
  - IRRITABILITY [None]
  - LIVER DISORDER [None]
  - PSYCHOTIC DISORDER [None]
  - SOMATIC DELUSION [None]
  - TREMOR [None]
